FAERS Safety Report 14688168 (Version 2)
Quarter: 2018Q2

REPORT INFORMATION
  Report Type: Spontaneous
  Country: US (occurrence: US)
  Receive Date: 20180328
  Receipt Date: 20180402
  Transmission Date: 20180711
  Serious: No
  Sender: FDA-Public Use
  Company Number: US-PFIZER INC-2018125934

PATIENT
  Age: 46 Year
  Sex: Male
  Weight: 99.79 kg

DRUGS (19)
  1. GABAPENTIN. [Suspect]
     Active Substance: GABAPENTIN
     Dosage: 300 MG, 3X/DAY (600 MG TABLET, 1/2 TABLET THREE TIMES A DAY FOR 7 DAYS]
     Route: 048
  2. GABAPENTIN. [Suspect]
     Active Substance: GABAPENTIN
     Dosage: 600 MG, 3X/DAY (1 TABLET THREE TIMES A DAY FOR 7 DAYS)
     Route: 048
  3. MORPHINE SULFATE. [Concomitant]
     Active Substance: MORPHINE SULFATE
     Indication: PAIN
     Dosage: 30 MG, 3X/DAY
     Route: 048
     Dates: start: 2009, end: 201803
  4. ATORVASTATIN CALCIUM. [Concomitant]
     Active Substance: ATORVASTATIN CALCIUM
     Indication: BLOOD CHOLESTEROL INCREASED
     Dosage: 20 MG, DAILY; [1/2-40 MG]
     Route: 048
     Dates: start: 2017
  5. AMLODIPINE BESILATE [Concomitant]
     Active Substance: AMLODIPINE BESYLATE
     Indication: HYPERTENSION
     Dosage: 5 MG, DAILY
     Route: 048
     Dates: start: 2006
  6. HYDROCODONE [Concomitant]
     Active Substance: HYDROCODONE
     Indication: PAIN
     Dosage: UNK, 3X/DAY (325-10 MG TABLETS)
     Route: 048
     Dates: start: 2008, end: 201803
  7. MESALAMINE. [Concomitant]
     Active Substance: MESALAMINE
     Indication: CROHN^S DISEASE
     Dosage: 1480 MG, DAILY; [FOUR- 370 MG SA CAPSULES BY MOUTH EVERY MORNING]
     Route: 048
     Dates: start: 2009
  8. GABAPENTIN. [Suspect]
     Active Substance: GABAPENTIN
     Indication: INTERVERTEBRAL DISC PROTRUSION
     Dosage: 360 MG, DAILY
  9. GABAPENTIN. [Suspect]
     Active Substance: GABAPENTIN
     Dosage: 3600 MG, DAILY
  10. HYDROCODONE [Concomitant]
     Active Substance: HYDROCODONE
     Dosage: 40 MG, UNK (FOUR 10 MG TABLETS)
  11. CREON [Concomitant]
     Active Substance: PANCRELIPASE AMYLASE\PANCRELIPASE LIPASE\PANCRELIPASE PROTEASE
     Indication: PANCREATITIS
     Dosage: 72000 IU, 2X/DAY; [EATS TWICE A DAY, TAKES A TOTAL OF FOUR CAPSULES DAILY]
     Route: 048
  12. GABAPENTIN. [Suspect]
     Active Substance: GABAPENTIN
     Dosage: 1200 MG, 3X/DAY (TWO 600 MG TABLETS)
     Route: 048
  13. BUDESONIDE. [Concomitant]
     Active Substance: BUDESONIDE
     Indication: CROHN^S DISEASE
     Dosage: 9 MG, DAILY; [THREE - 3 MG EC CAPSULES BY MOUTH EVERY MORNING]
     Route: 048
     Dates: start: 2009
  14. ZYRTEC [Concomitant]
     Active Substance: CETIRIZINE HYDROCHLORIDE
     Indication: DRUG HYPERSENSITIVITY
     Dosage: 10 MG, DAILY
     Route: 048
  15. TRAZODONE HYDROCHLORIDE. [Concomitant]
     Active Substance: TRAZODONE HYDROCHLORIDE
     Indication: SLEEP DISORDER
     Dosage: 100 MG, AS NEEDED; [TWO - 50 MG TABLETS BY MOUTH AS NEED AT BED TIME]
     Route: 048
     Dates: start: 201802
  16. MELATONIN [Concomitant]
     Active Substance: MELATONIN
     Indication: SLEEP DISORDER
     Dosage: 12 MG, 1X/DAY (FOUR-3 MG TABLETS; AT BED TIME)
     Route: 048
     Dates: start: 201802
  17. GABAPENTIN. [Suspect]
     Active Substance: GABAPENTIN
     Indication: PAIN
     Dosage: 300 MG, DAILY
  18. LISINOPRIL + HIDROCLOROTIAZIDA [Concomitant]
     Active Substance: HYDROCHLOROTHIAZIDE\LISINOPRIL
     Indication: HYPERTENSION
     Dosage: UNK UNK, 2X/DAY; [HYDROCHLORZIDE 12.5 MG-LISINOPRIL 20 MG]
     Route: 048
     Dates: start: 2006
  19. VITAMIN B3 [Concomitant]
     Active Substance: NIACIN
     Indication: VITAMIN SUPPLEMENTATION
     Dosage: 2000 IU, DAILY
     Route: 048

REACTIONS (4)
  - Product use in unapproved indication [Not Recovered/Not Resolved]
  - Tremor [Not Recovered/Not Resolved]
  - Feeling jittery [Not Recovered/Not Resolved]
  - Heart rate increased [Not Recovered/Not Resolved]

NARRATIVE: CASE EVENT DATE: 201803
